FAERS Safety Report 13995877 (Version 1)
Quarter: 2017Q3

REPORT INFORMATION
  Report Type: Spontaneous
  Country: US (occurrence: US)
  Receive Date: 20170921
  Receipt Date: 20170921
  Transmission Date: 20171128
  Serious: Yes (Hospitalization)
  Sender: FDA-Public Use
  Company Number: US-ASTRAZENECA-2017SE95479

PATIENT
  Age: 766 Month
  Sex: Male
  Weight: 90.3 kg

DRUGS (3)
  1. PAXIL [Concomitant]
     Active Substance: PAROXETINE HYDROCHLORIDE
     Indication: SLEEP DISORDER
     Dosage: DAILY
     Route: 048
     Dates: start: 2017
  2. BYDUREON [Suspect]
     Active Substance: EXENATIDE
     Indication: TYPE 2 DIABETES MELLITUS
     Route: 058
     Dates: start: 201612
  3. XANAX [Concomitant]
     Active Substance: ALPRAZOLAM
     Indication: SLEEP DISORDER
     Dosage: AS REQUIRED, ONE QUARTER OF A PILL
     Route: 048
     Dates: start: 2017

REACTIONS (11)
  - Sleep disorder [Recovering/Resolving]
  - Blood glucose increased [Unknown]
  - Nausea [Recovered/Resolved]
  - Limb discomfort [Recovering/Resolving]
  - Back disorder [Recovering/Resolving]
  - Gait disturbance [Not Recovered/Not Resolved]
  - Gastric ulcer haemorrhage [Recovered/Resolved]
  - Sepsis [Recovered/Resolved]
  - Gastric ulcer [Recovered/Resolved]
  - Hangover [Unknown]
  - Dehydration [Recovered/Resolved]

NARRATIVE: CASE EVENT DATE: 201704
